FAERS Safety Report 16490566 (Version 1)
Quarter: 2019Q3

REPORT INFORMATION
  Report Type: Spontaneous
  Country: US (occurrence: US)
  Receive Date: 20190627
  Receipt Date: 20190627
  Transmission Date: 20191004
  Serious: No
  Sender: FDA-Public Use
  Company Number: None

PATIENT
  Age: 62 Year
  Sex: Female

DRUGS (1)
  1. ACYCLOVIR. [Suspect]
     Active Substance: ACYCLOVIR
     Indication: ORAL HERPES
     Route: 048
     Dates: start: 20190502

REACTIONS (3)
  - Product solubility abnormal [None]
  - Oropharyngeal discomfort [None]
  - Foreign body in respiratory tract [None]

NARRATIVE: CASE EVENT DATE: 20190626
